FAERS Safety Report 9665854 (Version 1)
Quarter: 2013Q4

REPORT INFORMATION
  Report Type: Spontaneous
  Country: US (occurrence: None)
  Receive Date: 20131031
  Receipt Date: 20131031
  Transmission Date: 20140711
  Serious: No
  Sender: FDA-Public Use
  Company Number: None

PATIENT
  Age: 63 Year
  Sex: Female
  Weight: 65.77 kg

DRUGS (6)
  1. PRAVASTATIN [Suspect]
     Indication: BLOOD CHOLESTEROL INCREASED
     Route: 048
     Dates: start: 20121221, end: 20130904
  2. METOPROLOL ER SUCCINATE [Concomitant]
  3. AMLODIPINE BESYLATE [Concomitant]
  4. B-COMPLEX [Concomitant]
  5. VITC [Concomitant]
  6. ACETAMINOPHEN [Concomitant]

REACTIONS (5)
  - Nephrolithiasis [None]
  - Calculus ureteric [None]
  - Hypoaesthesia [None]
  - Hypoaesthesia [None]
  - No therapeutic response [None]
